FAERS Safety Report 18282246 (Version 2)
Quarter: 2020Q3

REPORT INFORMATION
  Report Type: Spontaneous
  Country: US (occurrence: US)
  Receive Date: 20200918
  Receipt Date: 20200924
  Transmission Date: 20201103
  Serious: Yes (Hospitalization)
  Sender: FDA-Public Use
  Company Number: US-ROCHE-2676120

PATIENT
  Age: 21 Year
  Sex: Male
  Weight: 79.45 kg

DRUGS (14)
  1. PRAZOSIN HCL [Concomitant]
     Active Substance: PRAZOSIN HYDROCHLORIDE
     Indication: POST-TRAUMATIC STRESS DISORDER
     Route: 048
  2. FLEXERIL [Concomitant]
     Active Substance: CYCLOBENZAPRINE HYDROCHLORIDE
     Indication: MUSCLE SPASMS
     Route: 048
  3. VALIUM [Suspect]
     Active Substance: DIAZEPAM
     Indication: ANXIETY
     Route: 048
  4. BUSPAR [Concomitant]
     Active Substance: BUSPIRONE HYDROCHLORIDE
  5. MEDICAL MARIJUANA [Concomitant]
     Active Substance: CANNABIS SATIVA SUBSP. INDICA TOP
  6. GEODON [Concomitant]
     Active Substance: ZIPRASIDONE HYDROCHLORIDE\ZIPRASIDONE MESYLATE
  7. THORAZINE [Concomitant]
     Active Substance: CHLORPROMAZINE
  8. KLONOPIN [Suspect]
     Active Substance: CLONAZEPAM
     Route: 048
     Dates: start: 20200804
  9. PROZAC [Concomitant]
     Active Substance: FLUOXETINE HYDROCHLORIDE
     Route: 048
  10. FLUOXETINE [Concomitant]
     Active Substance: FLUOXETINE HYDROCHLORIDE
  11. MODAFINIL. [Concomitant]
     Active Substance: MODAFINIL
     Route: 048
  12. OLANZAPINE. [Concomitant]
     Active Substance: OLANZAPINE
  13. KLONOPIN [Suspect]
     Active Substance: CLONAZEPAM
     Indication: PARASOMNIA
     Route: 048
     Dates: start: 2019, end: 2019
  14. VALIUM [Suspect]
     Active Substance: DIAZEPAM
     Indication: PARASOMNIA

REACTIONS (8)
  - Off label use [Unknown]
  - Sensory disturbance [Recovered/Resolved]
  - Nausea [Recovered/Resolved]
  - Headache [Recovered/Resolved]
  - Dissociation [Unknown]
  - Panic attack [Not Recovered/Not Resolved]
  - Intentional product use issue [Unknown]
  - Nasopharyngitis [Recovered/Resolved]

NARRATIVE: CASE EVENT DATE: 2019
